FAERS Safety Report 7040059-9 (Version None)
Quarter: 2010Q4

REPORT INFORMATION
  Report Type: 
  Country: None (occurrence: None)
  Receive Date: 20101012
  Receipt Date: 20100927
  Transmission Date: 20110411
  Serious: Yes (Other)
  Sender: FDA-Public Use
  Company Number: DE-SANOFI-AVENTIS-2010SA057943

PATIENT
  Age: 78 Year
  Sex: Male

DRUGS (3)
  1. DELIX PLUS [Suspect]
     Indication: HYPERTENSION
     Route: 048
  2. AMARYL [Suspect]
     Route: 048
  3. METFORMIN [Suspect]
     Route: 065

REACTIONS (2)
  - BLOOD GLUCOSE INCREASED [None]
  - CIRCULATORY COLLAPSE [None]
